FAERS Safety Report 8354274-5 (Version None)
Quarter: 2012Q2

REPORT INFORMATION
  Report Type: 
  Country: None (occurrence: None)
  Receive Date: 20120511
  Receipt Date: 20120430
  Transmission Date: 20120825
  Serious: Yes (Hospitalization, Disabling)
  Sender: FDA-Public Use
  Company Number: US-ROCHE-1064671

PATIENT
  Sex: Female
  Weight: 66.284 kg

DRUGS (6)
  1. ENBREL [Suspect]
     Indication: RHEUMATOID ARTHRITIS
     Route: 058
     Dates: start: 20000701, end: 20020201
  2. ARAVA [Concomitant]
  3. KINERET [Concomitant]
  4. METHOTREXATE [Concomitant]
  5. RITUXAN [Suspect]
     Indication: RHEUMATOID ARTHRITIS
     Route: 041
     Dates: start: 20070501
  6. TOCILIZUMAB [Concomitant]

REACTIONS (3)
  - DEFORMITY [None]
  - VULVAR DYSPLASIA [None]
  - NEURODERMATITIS [None]
